FAERS Safety Report 8386691-1 (Version None)
Quarter: 2012Q2

REPORT INFORMATION
  Report Type: 
  Country: None (occurrence: None)
  Receive Date: 20120523
  Receipt Date: 20120523
  Transmission Date: 20120825
  Serious: Yes (Hospitalization)
  Sender: FDA-Public Use
  Company Number: None

PATIENT
  Age: 81 Year
  Sex: Male
  Weight: 93 kg

DRUGS (2)
  1. OMEPRAZOLE [Suspect]
     Indication: GASTROOESOPHAGEAL REFLUX DISEASE
     Dosage: 20 MG DAILY PO
     Route: 048
     Dates: start: 20040101, end: 20120515
  2. COLCHICINE [Concomitant]

REACTIONS (10)
  - HYPOCALCAEMIA [None]
  - HYPOPHAGIA [None]
  - DIARRHOEA [None]
  - NORMOCHROMIC NORMOCYTIC ANAEMIA [None]
  - CARDIAC FAILURE CONGESTIVE [None]
  - IRON DEFICIENCY [None]
  - VITAMIN B12 DEFICIENCY [None]
  - HYPOMAGNESAEMIA [None]
  - POLYURIA [None]
  - FOLATE DEFICIENCY [None]
